FAERS Safety Report 8195813-7 (Version None)
Quarter: 2012Q1

REPORT INFORMATION
  Report Type: 
  Country: None (occurrence: None)
  Receive Date: 20120308
  Receipt Date: 20120227
  Transmission Date: 20120608
  Serious: Yes (Hospitalization)
  Sender: FDA-Public Use
  Company Number: HK-PFIZER INC-2012040132

PATIENT
  Age: 52 Year
  Sex: Male
  Weight: 87 kg

DRUGS (5)
  1. ESSENTIALE [Concomitant]
     Indication: SUPPLEMENTATION THERAPY
     Dosage: UNK
     Dates: start: 20100707
  2. AXITINIB [Suspect]
     Indication: HEPATIC NEOPLASM MALIGNANT
     Dosage: 5 MG, 2X/DAY
     Route: 048
     Dates: start: 20120104, end: 20120115
  3. LAMIVUDINE [Concomitant]
     Indication: HEPATITIS B
     Dosage: UNK
     Dates: start: 20101027
  4. AMILORIDE HYDROCHLORIDE [Concomitant]
     Indication: JOINT SWELLING
     Dosage: UNK
     Dates: start: 20100707
  5. AXITINIB [Suspect]
     Dosage: 5 MG, 2X/DAY
     Route: 048
     Dates: start: 20120201, end: 20120210

REACTIONS (1)
  - HEPATIC ENCEPHALOPATHY [None]
